FAERS Safety Report 19493706 (Version 2)
Quarter: 2025Q3

REPORT INFORMATION
  Report Type: Spontaneous
  Country: CA (occurrence: CA)
  Receive Date: 20210705
  Receipt Date: 20250704
  Transmission Date: 20251020
  Serious: Yes (Hospitalization, Other)
  Sender: SANOFI AVENTIS
  Company Number: CA-SA-SAC20210624000102

PATIENT
  Age: 61 Year
  Sex: Female

DRUGS (3)
  1. IRBESARTAN [Suspect]
     Active Substance: IRBESARTAN
     Route: 065
  2. HYDROCHLOROTHIAZIDE [Suspect]
     Active Substance: HYDROCHLOROTHIAZIDE
     Route: 065
  3. ALLOPURINOL [Suspect]
     Active Substance: ALLOPURINOL
     Route: 065
     Dates: start: 20191108, end: 20191231

REACTIONS (5)
  - Drug reaction with eosinophilia and systemic symptoms [Recovered/Resolved]
  - Fluid intake reduced [Recovered/Resolved]
  - Rash [Recovered/Resolved]
  - Hypersensitivity [Recovered/Resolved]
  - Acute kidney injury [Recovered/Resolved]

NARRATIVE: CASE EVENT DATE: 20200122
